FAERS Safety Report 10747669 (Version 2)
Quarter: 2015Q2

REPORT INFORMATION
  Report Type: Spontaneous
  Country: US (occurrence: US)
  Receive Date: 20150129
  Receipt Date: 20150403
  Transmission Date: 20150821
  Serious: Yes (Hospitalization, Other)
  Sender: FDA-Public Use
  Company Number: US-ELI_LILLY_AND_COMPANY-US201501006511

PATIENT
  Age: 76 Year
  Sex: Female
  Weight: 123.81 kg

DRUGS (5)
  1. HUMALOG [Suspect]
     Active Substance: INSULIN LISPRO
     Dosage: 25 DF, EACH EVENING
     Route: 065
     Dates: start: 1983
  2. LASIX [Concomitant]
     Active Substance: FUROSEMIDE
  3. LEVOTHYROXINE [Concomitant]
     Active Substance: LEVOTHYROXINE
  4. HUMALOG [Suspect]
     Active Substance: INSULIN LISPRO
     Indication: DIABETES MELLITUS
     Dosage: 20 DF, EACH MORNING
     Route: 065
     Dates: start: 1983
  5. PREMARIN [Concomitant]
     Active Substance: ESTROGENS, CONJUGATED

REACTIONS (7)
  - Diabetic retinopathy [Unknown]
  - Hypertension [Unknown]
  - Cardiac failure congestive [Recovering/Resolving]
  - Joint injury [Recovered/Resolved]
  - Atrial fibrillation [Recovered/Resolved with Sequelae]
  - Fall [Recovered/Resolved]
  - Hypothyroidism [Unknown]
